FAERS Safety Report 6537309-1 (Version None)
Quarter: 2010Q1

REPORT INFORMATION
  Report Type: 
  Country: None (occurrence: None)
  Receive Date: 20100110
  Receipt Date: 20091208
  Transmission Date: 20100710
  Serious: Yes (Death)
  Sender: FDA-Public Use
  Company Number: 2010SP000851

PATIENT

DRUGS (1)
  1. NASONEX [Suspect]
     Indication: DRUG USE FOR UNKNOWN INDICATION
     Dosage: NAS
     Route: 045

REACTIONS (1)
  - DEATH [None]
